FAERS Safety Report 19375350 (Version 6)
Quarter: 2022Q1

REPORT INFORMATION
  Report Type: Spontaneous
  Country: GB (occurrence: GB)
  Receive Date: 20210604
  Receipt Date: 20220127
  Transmission Date: 20220423
  Serious: Yes (Death, Hospitalization, Other)
  Sender: FDA-Public Use
  Company Number: NVSC2020GB234684

PATIENT
  Age: 75 Year
  Sex: Female
  Weight: 56.9 kg

DRUGS (43)
  1. CARBOPLATIN [Suspect]
     Active Substance: CARBOPLATIN
     Indication: Non-small cell lung cancer
     Dosage: 400 MG
     Route: 065
     Dates: start: 20200615
  2. CARBOPLATIN [Suspect]
     Active Substance: CARBOPLATIN
     Indication: Small cell lung cancer extensive stage
     Dosage: UNK
     Route: 065
  3. ETOPOSIDE [Suspect]
     Active Substance: ETOPOSIDE
     Indication: Non-small cell lung cancer
     Dosage: 100 MG/M2
     Route: 065
     Dates: start: 20200615, end: 20200617
  4. ETOPOSIDE [Suspect]
     Active Substance: ETOPOSIDE
     Dosage: 100 MG/M2
     Route: 065
     Dates: start: 20200728, end: 20200729
  5. ETOPOSIDE [Suspect]
     Active Substance: ETOPOSIDE
     Dosage: 164 MG
     Route: 065
     Dates: start: 20200615
  6. ETOPOSIDE [Suspect]
     Active Substance: ETOPOSIDE
     Dosage: 100 MG/M2
     Route: 042
     Dates: start: 20200818
  7. ETOPOSIDE [Suspect]
     Active Substance: ETOPOSIDE
     Dosage: 100 MG/M2, 2X/DAY, DATE OF MOST RECENT DOSE OF ETOPOSIDE 19AUG2020
     Route: 042
     Dates: start: 20200818, end: 20200819
  8. PACLITAXEL [Suspect]
     Active Substance: PACLITAXEL
     Indication: Small cell lung cancer extensive stage
     Dosage: UNK
     Route: 065
  9. PACLITAXEL [Suspect]
     Active Substance: PACLITAXEL
     Dosage: UNK
     Route: 065
  10. BEVACIZUMAB [Suspect]
     Active Substance: BEVACIZUMAB
     Indication: Small cell lung cancer extensive stage
     Dosage: UNK
     Route: 065
  11. BEVACIZUMAB [Suspect]
     Active Substance: BEVACIZUMAB
     Dosage: UNK
     Route: 065
  12. ATEZOLIZUMAB [Suspect]
     Active Substance: ATEZOLIZUMAB
     Indication: Non-small cell lung cancer
     Dosage: 1200 MG, EVERY 3 WEEKS
     Route: 042
     Dates: start: 20200615
  13. ATEZOLIZUMAB [Suspect]
     Active Substance: ATEZOLIZUMAB
     Indication: Small cell lung cancer
     Dosage: 1200 MG, EVERY 3 WEEKS
     Route: 042
     Dates: start: 20200706
  14. ATEZOLIZUMAB [Suspect]
     Active Substance: ATEZOLIZUMAB
     Indication: Transitional cell carcinoma
     Dosage: 1200 MG, EVERY 3 WEEKS
     Route: 042
     Dates: start: 20200727
  15. ATEZOLIZUMAB [Suspect]
     Active Substance: ATEZOLIZUMAB
     Indication: Small cell lung cancer extensive stage
     Dosage: 1200 MG, EVERY 3 WEEKS (ON 17/AUG/2020 SHE RECEIVED MOST RECENT DOSES OF ATEZOLIZUMAB.)
     Route: 042
     Dates: start: 20200817
  16. VENTOLIN [Suspect]
     Active Substance: ALBUTEROL SULFATE
     Indication: Chronic obstructive pulmonary disease
     Dosage: UNK
     Route: 065
  17. BUPRENORPHINE [Concomitant]
     Active Substance: BUPRENORPHINE
     Indication: Product used for unknown indication
     Dosage: UNK, WEEKLY
     Route: 065
     Dates: start: 20200401
  18. HERBALS\TURMERIC [Concomitant]
     Active Substance: HERBALS\TURMERIC
     Indication: Product used for unknown indication
     Dosage: 2 DF, QD
     Route: 065
     Dates: end: 20200727
  19. HERBALS\TURMERIC [Concomitant]
     Active Substance: HERBALS\TURMERIC
     Dosage: UNK, 2X/DAY
     Route: 065
     Dates: start: 20200727, end: 20200727
  20. GABAPENTIN [Concomitant]
     Active Substance: GABAPENTIN
     Indication: Product used for unknown indication
     Dosage: UNK
     Route: 065
     Dates: start: 20200401
  21. FUROSEMIDE [Concomitant]
     Active Substance: FUROSEMIDE
     Indication: Product used for unknown indication
     Dosage: UNK, DAILY
     Route: 065
     Dates: start: 20200902
  22. FUROSEMIDE [Concomitant]
     Active Substance: FUROSEMIDE
     Dosage: UNK, QD
     Route: 065
  23. LANSOPRAZOLE [Concomitant]
     Active Substance: LANSOPRAZOLE
     Indication: Gastrooesophageal reflux disease
     Dosage: UNK
     Route: 065
  24. LANSOPRAZOLE [Concomitant]
     Active Substance: LANSOPRAZOLE
     Indication: Gastrooesophageal reflux disease
     Dosage: UNK
     Route: 065
  25. MORPHINE SULFATE [Concomitant]
     Active Substance: MORPHINE SULFATE
     Indication: Product used for unknown indication
     Dosage: UNK
     Route: 065
     Dates: start: 20200501
  26. ZOLEDRONIC ACID [Concomitant]
     Active Substance: ZOLEDRONIC ACID
     Indication: Prophylaxis
     Dosage: UNK, WEEKLY
     Route: 065
     Dates: start: 20170101
  27. DOCUSATE SODIUM [Concomitant]
     Active Substance: DOCUSATE SODIUM
     Indication: Product used for unknown indication
     Dosage: UNK, QD
     Route: 065
  28. DOCUSATE SODIUM [Concomitant]
     Active Substance: DOCUSATE SODIUM
     Dosage: UNK, DAILY
     Route: 065
  29. DICLOFENAC [Concomitant]
     Active Substance: DICLOFENAC
     Indication: Product used for unknown indication
     Dosage: UNK
     Route: 065
     Dates: start: 20200401
  30. SPIRIVA [Concomitant]
     Active Substance: TIOTROPIUM BROMIDE MONOHYDRATE
     Indication: Chronic obstructive pulmonary disease
     Dosage: UNK, MONTHLY
     Route: 065
     Dates: start: 20200301
  31. CALCIUM CARBONATE\CHOLECALCIFEROL [Concomitant]
     Active Substance: CALCIUM CARBONATE\CHOLECALCIFEROL
     Indication: Product used for unknown indication
     Dosage: EVERY 0.5 DAY, BID
     Route: 065
     Dates: start: 20200902
  32. POLYETHYLENE GLYCOL 3350\POTASSIUM CHLORIDE\SODIUM BICARBONATE\SODIUM [Concomitant]
     Active Substance: POLYETHYLENE GLYCOL 3350\POTASSIUM CHLORIDE\SODIUM BICARBONATE\SODIUM CHLORIDE
     Indication: Product used for unknown indication
     Dosage: UNK
     Route: 065
     Dates: start: 20200902
  33. SENNA [Concomitant]
     Active Substance: SENNA LEAF\SENNOSIDES\SENNOSIDES A AND B
     Indication: Product used for unknown indication
     Dosage: UNK
     Route: 065
     Dates: start: 20200902
  34. CO-AMILOFRUSE [Concomitant]
     Active Substance: AMILORIDE\FUROSEMIDE
     Indication: Product used for unknown indication
     Dosage: UNK
     Route: 065
     Dates: start: 20200902
  35. TIOTROPIUM [Concomitant]
     Active Substance: TIOTROPIUM
     Indication: Product used for unknown indication
     Dosage: UNK
     Route: 065
     Dates: start: 20200902
  36. BECLOMETHASONE\FORMOTEROL [Concomitant]
     Active Substance: BECLOMETHASONE\FORMOTEROL
     Indication: Chronic obstructive pulmonary disease
     Dosage: UNK
     Route: 065
     Dates: start: 20200902
  37. MIRABEGRON [Concomitant]
     Active Substance: MIRABEGRON
     Indication: Urinary retention
     Dosage: UNK, DAILY
     Route: 065
     Dates: start: 20130101
  38. CISPLATIN [Concomitant]
     Active Substance: CISPLATIN
     Indication: Product used for unknown indication
     Dosage: UNK
     Route: 065
  39. CARBOHYDRATES\FATTY ACIDS\MINERALS\PROTEIN\VITAMINS [Concomitant]
     Active Substance: CARBOHYDRATES\FATTY ACIDS\MINERALS\PROTEIN\VITAMINS
     Indication: Product used for unknown indication
     Dosage: UNK
     Route: 065
     Dates: start: 20200902
  40. OXYCODONE [Concomitant]
     Active Substance: OXYCODONE
     Indication: Product used for unknown indication
     Dosage: UNK
     Route: 065
     Dates: start: 20200902
  41. ACETAMINOPHEN [Concomitant]
     Active Substance: ACETAMINOPHEN
     Indication: Product used for unknown indication
     Dosage: UNK
     Route: 065
     Dates: start: 20200902
  42. PREGABALIN [Concomitant]
     Active Substance: PREGABALIN
     Indication: Product used for unknown indication
     Dosage: UNK
     Route: 065
     Dates: start: 20200902
  43. PARAFFIN [Concomitant]
     Active Substance: PARAFFIN
     Indication: Product used for unknown indication
     Dosage: UNK, 4X/DAY (SKIN OINTMENT)
     Route: 065
     Dates: start: 20200902

REACTIONS (8)
  - Death [Fatal]
  - Lower respiratory tract infection [Recovered/Resolved]
  - Pneumonia [Recovered/Resolved]
  - Deep vein thrombosis [Not Recovered/Not Resolved]
  - Anaemia [Recovered/Resolved]
  - Alopecia [Not Recovered/Not Resolved]
  - Back pain [Not Recovered/Not Resolved]
  - Fall [Unknown]

NARRATIVE: CASE EVENT DATE: 20200703
